FAERS Safety Report 7765226-8 (Version None)
Quarter: 2011Q3

REPORT INFORMATION
  Report Type: 
  Country: None (occurrence: None)
  Receive Date: 20110921
  Receipt Date: 20110915
  Transmission Date: 20111222
  Serious: Yes (Death, Life-Threatening, Hospitalization, Disabling, Other)
  Sender: FDA-Public Use
  Company Number: US-GLAXOSMITHKLINE-A0944799A

PATIENT
  Age: 73 Year
  Sex: Female

DRUGS (2)
  1. ARIXTRA [Suspect]
     Indication: COAGULATION FACTOR V LEVEL ABNORMAL
     Dosage: 2.5ML PER DAY
     Route: 058
     Dates: start: 20070901
  2. ANTIBIOTIC [Concomitant]

REACTIONS (2)
  - DEATH [None]
  - HOSPITALISATION [None]
